FAERS Safety Report 7471957-X (Version None)
Quarter: 2011Q2

REPORT INFORMATION
  Report Type: 
  Country: None (occurrence: None)
  Receive Date: 20110511
  Receipt Date: 20100819
  Transmission Date: 20111010
  Serious: No
  Sender: FDA-Public Use
  Company Number: A0876756A

PATIENT
  Age: 65 Year
  Sex: Male
  Weight: 92 kg

DRUGS (5)
  1. LOMOTIL [Concomitant]
  2. TYKERB [Suspect]
     Dosage: 1250MG PER DAY
     Route: 048
     Dates: start: 20100606
  3. ALBUTEROL [Concomitant]
  4. LOVENOX [Concomitant]
  5. MULTI-VITAMIN [Concomitant]

REACTIONS (6)
  - COUGH [None]
  - FATIGUE [None]
  - DYSPNOEA [None]
  - DIARRHOEA [None]
  - BRONCHITIS [None]
  - ASTHENIA [None]
